FAERS Safety Report 8801864 (Version 1)
Quarter: 2012Q4

REPORT INFORMATION
  Report Type: 
  Country: BR (occurrence: BR)
  Receive Date: 20120921
  Receipt Date: 20120921
  Transmission Date: 20130627
  Serious: Yes (Other)
  Sender: FDA-Public Use
  Company Number: BR-SANOFI-AVENTIS-2012SA066212

PATIENT
  Age: 73 Year
  Sex: Male
  Weight: 63 kg

DRUGS (2)
  1. LANTUS [Suspect]
     Indication: TYPE 2 DIABETES MELLITUS
     Route: 065
     Dates: start: 2004
  2. AUTOPEN 24 [Suspect]
     Indication: DEVICE THERAPY

REACTIONS (7)
  - Myocardial infarction [Unknown]
  - Syncope [Unknown]
  - Hypotension [Unknown]
  - Dementia Alzheimer^s type [Unknown]
  - Memory impairment [Unknown]
  - Feeling abnormal [Recovering/Resolving]
  - Blood glucose increased [Recovering/Resolving]
